FAERS Safety Report 14824466 (Version 3)
Quarter: 2019Q1

REPORT INFORMATION
  Report Type: Spontaneous
  Country: US (occurrence: US)
  Receive Date: 20180429
  Receipt Date: 20190222
  Transmission Date: 20190417
  Serious: Yes (Other)
  Sender: FDA-Public Use
  Company Number: US-ASTRAZENECA-2018SE51250

PATIENT
  Sex: Female

DRUGS (35)
  1. VIMOVO [Suspect]
     Active Substance: ESOMEPRAZOLE MAGNESIUM\NAPROXEN
     Route: 048
     Dates: start: 1989, end: 2017
  2. LEVOTHYROXINE. [Concomitant]
     Active Substance: LEVOTHYROXINE
     Dates: start: 20151214
  3. METOCLOPRAMIDE. [Concomitant]
     Active Substance: METOCLOPRAMIDE
     Dates: start: 20151228
  4. NEXIUM [Suspect]
     Active Substance: ESOMEPRAZOLE MAGNESIUM
     Route: 048
     Dates: start: 1989, end: 2017
  5. PREVACID 24 HR [Suspect]
     Active Substance: LANSOPRAZOLE
     Route: 048
     Dates: start: 1989, end: 2017
  6. LORATADINE. [Concomitant]
     Active Substance: LORATADINE
     Dates: start: 20170324
  7. PREVACID [Suspect]
     Active Substance: LANSOPRAZOLE
     Route: 048
     Dates: start: 1989, end: 2017
  8. OXYBUTYNIN. [Concomitant]
     Active Substance: OXYBUTYNIN CHLORIDE
     Dates: start: 20160110
  9. ADVAIR DISKUS [Concomitant]
     Active Substance: FLUTICASONE PROPIONATE\SALMETEROL XINAFOATE
     Dates: start: 20160125
  10. ALPRAZOLAM. [Concomitant]
     Active Substance: ALPRAZOLAM
     Dates: start: 20160527
  11. CITALOPRAM [Concomitant]
     Active Substance: CITALOPRAM HYDROBROMIDE
     Dates: start: 20150819
  12. NEXIUM 24HR [Suspect]
     Active Substance: ESOMEPRAZOLE MAGNESIUM
     Route: 048
     Dates: start: 1989, end: 2017
  13. PRILOSEC OTC [Suspect]
     Active Substance: OMEPRAZOLE MAGNESIUM
     Route: 048
     Dates: start: 1989, end: 2017
  14. MONTELUKAST [Concomitant]
     Active Substance: MONTELUKAST SODIUM
     Dates: start: 20160110
  15. PRAMIPEXOLE. [Concomitant]
     Active Substance: PRAMIPEXOLE
     Dates: start: 20160107
  16. FLUTICASONE. [Concomitant]
     Active Substance: FLUTICASONE
     Dates: start: 20160527
  17. NEXIUM [Suspect]
     Active Substance: ESOMEPRAZOLE MAGNESIUM
     Route: 048
     Dates: start: 20130717, end: 20170605
  18. PRILOSEC [Suspect]
     Active Substance: OMEPRAZOLE MAGNESIUM
     Route: 048
     Dates: start: 1989, end: 2017
  19. ACIPHEX [Suspect]
     Active Substance: RABEPRAZOLE SODIUM
     Route: 065
     Dates: start: 1989, end: 2017
  20. CROMOLYN [Concomitant]
     Active Substance: CROMOLYN
     Dates: start: 20150720
  21. SIMVASTATIN. [Concomitant]
     Active Substance: SIMVASTATIN
     Dates: start: 20160214
  22. GEMFIBROZIL. [Concomitant]
     Active Substance: GEMFIBROZIL
     Dates: start: 20160125
  23. AMITRIPTYLINE [Concomitant]
     Active Substance: AMITRIPTYLINE
     Dates: start: 20160125
  24. BACLOFEN. [Concomitant]
     Active Substance: BACLOFEN
     Dates: start: 20160418
  25. PRILOSEC [Suspect]
     Active Substance: OMEPRAZOLE MAGNESIUM
     Dosage: GENERIC
     Route: 048
     Dates: start: 20130715
  26. DEXILANT [Suspect]
     Active Substance: DEXLANSOPRAZOLE
     Route: 048
     Dates: start: 1989, end: 2017
  27. PROTONIX [Suspect]
     Active Substance: PANTOPRAZOLE SODIUM
     Route: 048
     Dates: start: 1989, end: 2017
  28. TOPIRAMATE. [Concomitant]
     Active Substance: TOPIRAMATE
     Dates: start: 20160125
  29. OXYBUTYNIN. [Concomitant]
     Active Substance: OXYBUTYNIN CHLORIDE
     Dates: start: 20160208
  30. ISOSORBIDE MONONITRATE. [Concomitant]
     Active Substance: ISOSORBIDE MONONITRATE
     Dates: start: 20160223
  31. NEXIUM [Suspect]
     Active Substance: ESOMEPRAZOLE MAGNESIUM
     Dosage: 40 MG
     Route: 048
     Dates: start: 20140118
  32. TRIAMCINOLONE [Concomitant]
     Active Substance: TRIAMCINOLONE
     Dates: start: 20141023
  33. DULOXETINE. [Concomitant]
     Active Substance: DULOXETINE
     Dates: start: 20160111
  34. GABAPENTIN. [Concomitant]
     Active Substance: GABAPENTIN
     Dates: start: 20161017
  35. PRAMIPEXOLE. [Concomitant]
     Active Substance: PRAMIPEXOLE
     Dates: start: 20160204

REACTIONS (2)
  - Chronic kidney disease [Unknown]
  - Renal injury [Unknown]
